FAERS Safety Report 4449690-8 (Version None)
Quarter: 2004Q3

REPORT INFORMATION
  Report Type: 
  Country: None (occurrence: None)
  Receive Date: 20040913
  Receipt Date: 20040913
  Transmission Date: 20050211
  Serious: Yes (Hospitalization)
  Sender: FDA-Public Use
  Company Number: None

PATIENT
  Age: 55 Year
  Sex: Female
  Weight: 68.0396 kg

DRUGS (2)
  1. FACTIVE [Suspect]
     Indication: ACUTE SINUSITIS
     Dosage: ONE TAB PO ORAL
     Route: 048
     Dates: start: 20040902, end: 20040908
  2. FACTIVE [Suspect]
     Indication: BRONCHITIS ACUTE
     Dosage: ONE TAB PO ORAL
     Route: 048
     Dates: start: 20040902, end: 20040908

REACTIONS (2)
  - PRURITUS [None]
  - RASH [None]
